FAERS Safety Report 23202571 (Version 1)
Quarter: 2023Q4

REPORT INFORMATION
  Report Type: Spontaneous
  Country: US (occurrence: None)
  Receive Date: 20231118
  Receipt Date: 20231118
  Transmission Date: 20240110
  Serious: Yes (Hospitalization)
  Sender: FDA-Public Use
  Company Number: None

PATIENT
  Sex: Female
  Weight: 76 kg

DRUGS (7)
  1. FEMARA [Suspect]
     Active Substance: LETROZOLE
  2. HYDROCHLOROTHIAZIDE [Concomitant]
  3. IBUPROFEN [Concomitant]
  4. METFORMIN [Concomitant]
  5. SUMATRIPTAN [Concomitant]
  6. TYLENOL [Concomitant]
  7. VICODIN [Concomitant]

REACTIONS (2)
  - Cellulitis [None]
  - Post procedural complication [None]
